FAERS Safety Report 18598157 (Version 1)
Quarter: 2020Q4

REPORT INFORMATION
  Report Type: Spontaneous
  Country: DE (occurrence: DE)
  Receive Date: 20201210
  Receipt Date: 20201210
  Transmission Date: 20210114
  Serious: Yes (Other)
  Sender: FDA-Public Use
  Company Number: DE-JNJFOC-20201206213

PATIENT
  Age: 79 Year
  Sex: Female
  Weight: 64 kg

DRUGS (1)
  1. XARELTO [Suspect]
     Active Substance: RIVAROXABAN
     Indication: ATRIAL FIBRILLATION
     Dosage: 20 MG
     Route: 048

REACTIONS (5)
  - Renal impairment [Unknown]
  - Memory impairment [Unknown]
  - Incorrect dose administered [Unknown]
  - Glomerular filtration rate decreased [Unknown]
  - Impaired healing [Unknown]

NARRATIVE: CASE EVENT DATE: 2020
